FAERS Safety Report 7039262-3 (Version None)
Quarter: 2010Q4

REPORT INFORMATION
  Report Type: 
  Country: None (occurrence: None)
  Receive Date: 20101012
  Receipt Date: 20101004
  Transmission Date: 20110411
  Serious: Yes (Other)
  Sender: FDA-Public Use
  Company Number: US-ASTRAZENECA-2010SE46589

PATIENT
  Age: 44 Year
  Sex: Male
  Weight: 90.7 kg

DRUGS (3)
  1. CRESTOR [Suspect]
     Route: 048
     Dates: start: 20060101
  2. NEXIUM [Concomitant]
  3. PREDNISONE [Concomitant]

REACTIONS (1)
  - THYROID CANCER [None]
